FAERS Safety Report 14774413 (Version 2)
Quarter: 2018Q2

REPORT INFORMATION
  Report Type: Report from Study
  Country: None (occurrence: US)
  Receive Date: 20180418
  Receipt Date: 20180515
  Transmission Date: 20180711
  Serious: Yes (Hospitalization, Other)
  Sender: FDA-Public Use
  Company Number: US-ABBVIE-18K-163-2273946-00

PATIENT
  Age: 73 Year
  Sex: Female
  Weight: 99.43 kg

DRUGS (1)
  1. HUMIRA [Suspect]
     Active Substance: ADALIMUMAB
     Indication: PSORIASIS
     Route: 058
     Dates: start: 2014, end: 201802

REACTIONS (16)
  - Nasal obstruction [Recovering/Resolving]
  - Sinonasal obstruction [Recovering/Resolving]
  - Computerised tomogram abnormal [Not Recovered/Not Resolved]
  - Headache [Recovered/Resolved]
  - Sinus polyp [Recovering/Resolving]
  - Psoriasis [Not Recovered/Not Resolved]
  - Atrophy [Recovering/Resolving]
  - Nasal polyps [Recovered/Resolved]
  - Cardiac stress test abnormal [Not Recovered/Not Resolved]
  - Immunodeficiency [Not Recovered/Not Resolved]
  - Bronchitis [Not Recovered/Not Resolved]
  - Polyp [Recovered/Resolved]
  - Procedural pain [Recovering/Resolving]
  - Type 2 diabetes mellitus [Recovered/Resolved]
  - Sinusitis [Recovered/Resolved]
  - Platelet count decreased [Not Recovered/Not Resolved]

NARRATIVE: CASE EVENT DATE: 201708
